FAERS Safety Report 18570470 (Version 3)
Quarter: 2021Q1

REPORT INFORMATION
  Report Type: Spontaneous
  Country: US (occurrence: US)
  Receive Date: 20201202
  Receipt Date: 20210128
  Transmission Date: 20210419
  Serious: Yes (Death, Hospitalization, Other)
  Sender: FDA-Public Use
  Company Number: US-PFIZER INC-2020474602

PATIENT
  Age: 19 Year
  Sex: Female
  Weight: 44.4 kg

DRUGS (28)
  1. TOPOTECAN HYDROCHLORIDE. [Suspect]
     Active Substance: TOPOTECAN HYDROCHLORIDE
     Indication: EWING^S SARCOMA RECURRENT
     Dosage: 1.1 MG, DAILY (1.1 MG IV QD (EVERY DAY) X 5 DAYS)
     Route: 042
     Dates: start: 20201116, end: 20201120
  2. NARCAN [Concomitant]
     Active Substance: NALOXONE HYDROCHLORIDE
     Indication: PROPHYLAXIS
     Dosage: UNK, AS NEEDED (4 MG/0.1 ML NASAL SPRAY L SPRAY(S) INTRA NASALLY ONCE, AS NEEDED/ REPEAT ALTERNATING
     Route: 045
  3. POLYETHYLENE GLYCOL 3350. [Concomitant]
     Active Substance: POLYETHYLENE GLYCOL 3350
     Indication: CONSTIPATION
     Dosage: 17 G, AS NEEDED (1?2 TIMES A DAY, AS NEEDED )
     Route: 048
  4. DIAZEPAM. [Concomitant]
     Active Substance: DIAZEPAM
     Indication: MUSCLE SPASMS
     Dosage: 5 MG, AS NEEDED AT BEDTIME
     Route: 048
  5. PEGFILGRASTIM [Concomitant]
     Active Substance: PEGFILGRASTIM
     Dosage: 6 MG, 1X/DAY
     Route: 058
  6. CIPROFLOXACIN. [Concomitant]
     Active Substance: CIPROFLOXACIN
     Dosage: 500 MG, 2X/DAY
     Route: 048
  7. HYDROXYZINE HYDROCHLORIDE. [Concomitant]
     Active Substance: HYDROXYZINE HYDROCHLORIDE
     Indication: NAUSEA
     Dosage: 25 MG, AS NEEDED
     Route: 048
  8. LORAZEPAM. [Concomitant]
     Active Substance: LORAZEPAM
     Indication: ANXIETY
     Dosage: UNK, AS NEEDED (1?1.5 TAB(S) ORALLY EVERY 6 HOURS , AS NEEDED)
     Route: 048
  9. MARINOL [ALLOPURINOL] [Concomitant]
     Active Substance: ALLOPURINOL
     Dosage: 5 MG, 2X/DAY
     Route: 048
  10. MORPHINE [Concomitant]
     Active Substance: MORPHINE
     Indication: PAIN
     Dosage: 15 MG, AS NEEDED
     Route: 048
  11. SOLU?CORTEF [Concomitant]
     Active Substance: HYDROCORTISONE SODIUM SUCCINATE
     Indication: ADRENOCORTICAL INSUFFICIENCY ACUTE
     Dosage: 100 MG, AS NEEDED
     Route: 030
  12. VINCRISTINE SULFATE. [Suspect]
     Active Substance: VINCRISTINE SULFATE
     Indication: EWING^S SARCOMA RECURRENT
     Dosage: UNK
  13. LIDOCAINE AND PRILOCAINE [Concomitant]
     Active Substance: LIDOCAINE\PRILOCAINE
     Indication: PROPHYLAXIS
     Dosage: UNK (TOPICAL CREAM APPLY TO PORT SITE 1 HOUR PRIOR TO ACCESS)
     Route: 061
  14. METHADONE [Concomitant]
     Active Substance: METHADONE HYDROCHLORIDE
     Dosage: 5 MG, 2X/DAY
     Route: 048
  15. ACETAMINOPHEN. [Concomitant]
     Active Substance: ACETAMINOPHEN
     Indication: PAIN
     Dosage: UNK UNK, AS NEEDED (325 MG ORAL TABLET 2 TAB(S) ORALLY EVERY 6 HOURS, AS NEEDED)
     Route: 048
  16. BACTRIM [Concomitant]
     Active Substance: SULFAMETHOXAZOLE\TRIMETHOPRIM
     Dosage: UNK, 2X/DAY (400 MG?80 MG ORAL TABLET 2 TAB(S) ORALLY 2 TIMES A DAY X 24 DAYS ?ON SATURDAYS AND SUND
     Route: 048
  17. CLINDAMYCIN [CLINDAMYCIN HYDROCHLORIDE] [Concomitant]
     Dosage: 75 MG, 3X/DAY
     Route: 048
  18. DOCUSATE SODIUM. [Concomitant]
     Active Substance: DOCUSATE SODIUM
     Dosage: 10 MG/ML, 2X/DAY (10 MILLILITRE(S) ORALLY 2 TIMES A DAY)
     Route: 048
  19. HYDROCORTISONE. [Concomitant]
     Active Substance: HYDROCORTISONE
     Indication: MALAISE
  20. ACETAMINOPHEN. [Concomitant]
     Active Substance: ACETAMINOPHEN
     Indication: PYREXIA
  21. HYDROCORTISONE. [Concomitant]
     Active Substance: HYDROCORTISONE
     Indication: NAUSEA
  22. HYDROCORTISONE. [Concomitant]
     Active Substance: HYDROCORTISONE
     Indication: VOMITING
  23. PALBOCICLIB [Suspect]
     Active Substance: PALBOCICLIB
     Indication: EWING^S SARCOMA RECURRENT
     Dosage: 100 MG, DAILY (PALBO 100 MG PO QD (EVERY DAY) X 14 DAYS)
     Route: 048
     Dates: start: 20201116, end: 20201129
  24. HYDROXYZINE HYDROCHLORIDE. [Concomitant]
     Active Substance: HYDROXYZINE HYDROCHLORIDE
     Indication: VOMITING
  25. OLANZAPINE. [Concomitant]
     Active Substance: OLANZAPINE
     Dosage: 5 MG, 1X/DAY ((AT BEDTIME) X 30 DAYS)
     Route: 048
  26. CYCLOPHOSPHAMIDE. [Suspect]
     Active Substance: CYCLOPHOSPHAMIDE
     Indication: EWING^S SARCOMA RECURRENT
     Dosage: 370 MG, EVERY DAY FOR 5 DAYS
     Route: 042
  27. HYDROCORTISONE. [Concomitant]
     Active Substance: HYDROCORTISONE
     Indication: PYREXIA
     Dosage: 1.5 MG, 4X/DAY
     Route: 048
  28. ONDANSETRON [Concomitant]
     Active Substance: ONDANSETRON
     Dosage: 8 MG, 3X/DAY (EVERY 8 HOURS X 10 DAYS)
     Route: 048

REACTIONS (8)
  - Neoplasm progression [Fatal]
  - Febrile neutropenia [Unknown]
  - Weight decreased [Unknown]
  - Platelet count decreased [Unknown]
  - Off label use [Unknown]
  - Neutropenia [Unknown]
  - Epistaxis [Unknown]
  - Thrombocytopenia [Unknown]

NARRATIVE: CASE EVENT DATE: 20201127
